FAERS Safety Report 13620113 (Version 1)
Quarter: 2017Q2

REPORT INFORMATION
  Report Type: Report from Study
  Country: None (occurrence: US)
  Receive Date: 20170607
  Receipt Date: 20170607
  Transmission Date: 20170830
  Serious: Yes (Hospitalization, Other)
  Sender: FDA-Public Use
  Company Number: US-ABBVIE-17K-163-1998975-00

PATIENT
  Age: 51 Year
  Sex: Female

DRUGS (1)
  1. HUMIRA [Suspect]
     Active Substance: ADALIMUMAB
     Indication: COLITIS ULCERATIVE
     Route: 058
     Dates: start: 2013, end: 201610

REACTIONS (14)
  - Diarrhoea [Unknown]
  - Defaecation urgency [Unknown]
  - Colitis ulcerative [Unknown]
  - Abdominal tenderness [Unknown]
  - Meningioma [Unknown]
  - Tonsillectomy [Unknown]
  - Haemorrhage [Unknown]
  - Hysterectomy [Unknown]
  - Colitis ulcerative [Unknown]
  - Colitis ulcerative [Unknown]
  - Haematochezia [Unknown]
  - Frequent bowel movements [Unknown]
  - Headache [Unknown]
  - Abdominal pain [Unknown]

NARRATIVE: CASE EVENT DATE: 201305
